FAERS Safety Report 24344805 (Version 3)
Quarter: 2024Q4

REPORT INFORMATION
  Report Type: Spontaneous
  Country: US (occurrence: US)
  Receive Date: 20240920
  Receipt Date: 20241001
  Transmission Date: 20250115
  Serious: Yes (Other)
  Sender: SANOFI AVENTIS
  Company Number: US-SA-2024SA271037

PATIENT
  Age: 43 Year
  Sex: Male

DRUGS (2)
  1. ALTUVIIIO [Suspect]
     Active Substance: EFANESOCTOCOG ALFA
     Indication: Haemorrhage prophylaxis
     Dosage: 3500 UNITS (+/-10%), QW
     Route: 042
  2. ALTUVIIIO [Suspect]
     Active Substance: EFANESOCTOCOG ALFA
     Dosage: 3500 UNITS (+/-10%), PRN (EVERY 2-3 DAYS AS NEEDED FOR BLEEDING)
     Route: 042

REACTIONS (3)
  - Haemarthrosis [Recovered/Resolved]
  - Spontaneous haemorrhage [Unknown]
  - Osteoarthritis [Unknown]

NARRATIVE: CASE EVENT DATE: 20240818
